FAERS Safety Report 8661474 (Version 2)
Quarter: 2013Q1

REPORT INFORMATION
  Report Type: Spontaneous
  Country: US (occurrence: None)
  Receive Date: 20120622
  Receipt Date: 20121211
  Transmission Date: 20140127
  Serious: Yes (Other)
  Sender: FDA-Public Use
  Company Number: 2012032617

PATIENT
  Age: 36 Year
  Sex: Female

DRUGS (2)
  1. PRIVIGEN [Suspect]
     Indication: STEVENS-JOHNSON SYNDROME
     Route: 042
  2. NYQUIL [Concomitant]

REACTIONS (1)
  - Haemolysis [None]
